FAERS Safety Report 8532889-9 (Version None)
Quarter: 2012Q3

REPORT INFORMATION
  Report Type: 
  Country: None (occurrence: None)
  Receive Date: 20120724
  Receipt Date: 20120717
  Transmission Date: 20120928
  Serious: Yes (Hospitalization)
  Sender: FDA-Public Use
  Company Number: FR-ASTELLAS-2012EU005183

PATIENT
  Age: 49 Year
  Sex: Male

DRUGS (8)
  1. BACTRIM [Concomitant]
     Dosage: 2 DF, WEEKLY
     Route: 065
     Dates: start: 20111203
  2. PROGRAF [Suspect]
     Dosage: 5 MG, BID
     Route: 065
     Dates: start: 20111203
  3. PROGRAF [Suspect]
     Dosage: 4 MG, BID
     Route: 065
  4. CELLCEPT [Concomitant]
     Dosage: 1 G, BID
     Route: 065
     Dates: start: 20111203
  5. INEXIUM                            /01479303/ [Concomitant]
     Dosage: 40 MG, UNKNOWN/D
     Route: 065
     Dates: start: 20111203
  6. PREDNISOLONE [Concomitant]
     Dosage: 20 MG, UNKNOWN/D
     Route: 065
     Dates: start: 20111206
  7. FLUCONAZOLE [Suspect]
     Dosage: 400 MG, BID
     Route: 048
     Dates: start: 20111210, end: 20111211
  8. SMECTA                             /07327601/ [Concomitant]
     Dosage: 1 DF, TID
     Route: 065
     Dates: start: 20111206

REACTIONS (2)
  - NEPHROPATHY TOXIC [None]
  - OVERDOSE [None]
